FAERS Safety Report 5244899-8 (Version None)
Quarter: 2007Q1

REPORT INFORMATION
  Report Type: 
  Country: None (occurrence: None)
  Receive Date: 20070221
  Receipt Date: 20070221
  Transmission Date: 20070707
  Serious: Yes (Hospitalization)
  Sender: FDA-Public Use
  Company Number: None

PATIENT
  Sex: Female
  Weight: 48.0813 kg

DRUGS (1)
  1. TOPAMAX [Suspect]
     Indication: MIGRAINE
     Dosage: 150 MG BID ORAL
     Route: 048
     Dates: start: 20050601, end: 20070101

REACTIONS (8)
  - AMNESIA [None]
  - ANOREXIA [None]
  - DEPRESSION [None]
  - GASTRITIS [None]
  - NEPHROLITHIASIS [None]
  - PARAESTHESIA [None]
  - VISUAL DISTURBANCE [None]
  - WEIGHT DECREASED [None]
